FAERS Safety Report 18401295 (Version 1)
Quarter: 2020Q4

REPORT INFORMATION
  Report Type: Spontaneous
  Country: US (occurrence: US)
  Receive Date: 20201020
  Receipt Date: 20201020
  Transmission Date: 20210114
  Serious: No
  Sender: FDA-Public Use
  Company Number: US-ELI_LILLY_AND_COMPANY-US202010002901

PATIENT
  Age: 46 Year
  Sex: Female

DRUGS (4)
  1. TRULICITY [Suspect]
     Active Substance: DULAGLUTIDE
     Indication: METABOLIC SYNDROME
  2. INVOKANA [Concomitant]
     Active Substance: CANAGLIFLOZIN
     Indication: METABOLIC SYNDROME
  3. TRULICITY [Suspect]
     Active Substance: DULAGLUTIDE
     Indication: INSULIN RESISTANCE
     Dosage: 1.5 MG, UNKNOWN
     Route: 058
  4. INVOKANA [Concomitant]
     Active Substance: CANAGLIFLOZIN
     Indication: INSULIN RESISTANCE
     Dosage: 300 MG, DAILY

REACTIONS (4)
  - Rash [Recovering/Resolving]
  - Blood glucose increased [Recovering/Resolving]
  - Weight increased [Unknown]
  - General physical health deterioration [Recovering/Resolving]

NARRATIVE: CASE EVENT DATE: 202004
